FAERS Safety Report 12201233 (Version 1)
Quarter: 2016Q1

REPORT INFORMATION
  Report Type: Spontaneous
  Country: US (occurrence: US)
  Receive Date: 20160322
  Receipt Date: 20160322
  Transmission Date: 20160526
  Serious: No
  Sender: FDA-Public Use
  Company Number: US-SA-2015SA068549

PATIENT
  Age: 56 Year
  Sex: Female

DRUGS (2)
  1. NASACORT ALLERGY 24HR [Suspect]
     Active Substance: TRIAMCINOLONE ACETONIDE
     Indication: HOUSE DUST ALLERGY
     Dosage: STARTED DRUG 4 DAYS AGO?DOSE: 55 MCG 2 SNIFFS PER NOSTRIL
     Route: 045
  2. NASACORT ALLERGY 24HR [Suspect]
     Active Substance: TRIAMCINOLONE ACETONIDE
     Indication: PARANASAL SINUS DISCOMFORT
     Dosage: STARTED DRUG 4 DAYS AGO?DOSE: 55 MCG 2 SNIFFS PER NOSTRIL
     Route: 045

REACTIONS (2)
  - Eye swelling [Unknown]
  - Extra dose administered [Unknown]
